FAERS Safety Report 19710660 (Version 1)
Quarter: 2021Q3

REPORT INFORMATION
  Report Type: Report from Study
  Country: US (occurrence: US)
  Receive Date: 20210817
  Receipt Date: 20210817
  Transmission Date: 20211014
  Serious: No
  Sender: FDA-Public Use
  Company Number: NVSC2021US184492

PATIENT
  Age: 58 Year
  Sex: Female

DRUGS (1)
  1. ENTRESTO [Suspect]
     Active Substance: SACUBITRIL\VALSARTAN
     Indication: PRODUCT USED FOR UNKNOWN INDICATION
     Dosage: 50 MG, BID(24/26MG)
     Route: 048
     Dates: start: 202107

REACTIONS (4)
  - Wrong technique in product usage process [Unknown]
  - Insomnia [Unknown]
  - Cough [Unknown]
  - Weight fluctuation [Unknown]

NARRATIVE: CASE EVENT DATE: 202107
